FAERS Safety Report 6376102-X (Version None)
Quarter: 2009Q3

REPORT INFORMATION
  Report Type: 
  Country: None (occurrence: None)
  Receive Date: 20090921
  Receipt Date: 20090911
  Transmission Date: 20100115
  Serious: Yes (Life-Threatening)
  Sender: FDA-Public Use
  Company Number: 220004M09GBR

PATIENT
  Age: 11 Year
  Sex: Female
  Weight: 46 kg

DRUGS (1)
  1. SOMATROPIN (SOMATROPIN) [Suspect]
     Indication: TURNER'S SYNDROME
     Dosage: 1.6 MG, 1 IN 1 DAYS, SUBCUTANEOUS
     Route: 058
     Dates: start: 20051215, end: 20060130

REACTIONS (4)
  - ANAPHYLACTIC SHOCK [None]
  - BLOOD PRESSURE DIASTOLIC INCREASED [None]
  - HEADACHE [None]
  - RASH [None]
